FAERS Safety Report 20375341 (Version 1)
Quarter: 2022Q1

REPORT INFORMATION
  Report Type: Spontaneous
  Country: IT (occurrence: IT)
  Receive Date: 20220125
  Receipt Date: 20220125
  Transmission Date: 20220424
  Serious: Yes (Hospitalization)
  Sender: FDA-Public Use
  Company Number: IT-SANOFI-00875228

PATIENT
  Age: 46 Year
  Sex: Male

DRUGS (6)
  1. AZITHROMYCIN [Suspect]
     Active Substance: AZITHROMYCIN
     Dosage: 500 MG, QD (ONCE A DAY)
  2. AUBAGIO [Suspect]
     Active Substance: TERIFLUNOMIDE
     Indication: Multiple sclerosis
     Dosage: 14 MG, QD (ONCE A DAY)
     Dates: start: 20180426, end: 20211126
  3. RIFADIN [Suspect]
     Active Substance: RIFAMPIN
     Dosage: 300 MG, Q4H (EVERY 4 HOURS)
  4. OMEPRAZOLE [Suspect]
     Active Substance: OMEPRAZOLE
     Dosage: 40 MG
  5. ETAPIAM [Suspect]
     Active Substance: ETHAMBUTOL HYDROCHLORIDE
     Dosage: 400 MG, Q8H (EVERY 8 HOURS; 1 TABLET AT 8 AM, AT 4 PM AND AT 10 PM)
  6. PREDNISONE [Suspect]
     Active Substance: PREDNISONE
     Dosage: 5 MG

REACTIONS (2)
  - Mycobacterial infection [Recovering/Resolving]
  - Lung disorder [Recovering/Resolving]
